FAERS Safety Report 15490553 (Version 1)
Quarter: 2018Q4

REPORT INFORMATION
  Report Type: Spontaneous
  Country: JP (occurrence: JP)
  Receive Date: 20181011
  Receipt Date: 20181011
  Transmission Date: 20190205
  Serious: Yes (Hospitalization, Other)
  Sender: FDA-Public Use
  Company Number: PHJP2018JP017325

PATIENT
  Age: 49 Year
  Sex: Male

DRUGS (1)
  1. TASIGNA [Suspect]
     Active Substance: NILOTINIB
     Indication: ACUTE LEUKAEMIA
     Dosage: UNK
     Route: 048

REACTIONS (8)
  - Organising pneumonia [Recovering/Resolving]
  - Oedema peripheral [Unknown]
  - Tubulointerstitial nephritis [Recovering/Resolving]
  - Proteinuria [Unknown]
  - Nephrotic syndrome [Unknown]
  - Renal impairment [Unknown]
  - Glomerulonephritis membranous [Unknown]
  - Product use in unapproved indication [Unknown]
